FAERS Safety Report 4376725-3 (Version None)
Quarter: 2004Q2

REPORT INFORMATION
  Report Type: 
  Country: None (occurrence: None)
  Receive Date: 20040609
  Receipt Date: 20040430
  Transmission Date: 20050107
  Serious: Yes (Other)
  Sender: FDA-Public Use
  Company Number: 2004211890US

PATIENT
  Age: 60 Year
  Sex: Male

DRUGS (2)
  1. BEXTRA [Suspect]
     Dosage: 10 MG, BID,
  2. AVANDIA [Concomitant]

REACTIONS (1)
  - CARDIAC FAILURE CONGESTIVE [None]
